FAERS Safety Report 5705776-9 (Version None)
Quarter: 2008Q2

REPORT INFORMATION
  Report Type: 
  Country: None (occurrence: None)
  Receive Date: 20080415
  Receipt Date: 20080404
  Transmission Date: 20081010
  Serious: Yes (Hospitalization)
  Sender: FDA-Public Use
  Company Number: FR-JNJFOC-20080402026

PATIENT
  Age: 32 Year
  Sex: Male

DRUGS (3)
  1. REMICADE [Suspect]
     Indication: JUVENILE ARTHRITIS
     Route: 042
  2. METHOTREXATE [Suspect]
     Indication: JUVENILE ARTHRITIS
     Route: 048
  3. CORTANCYL [Concomitant]
     Indication: JUVENILE ARTHRITIS

REACTIONS (2)
  - PULMONARY TUBERCULOSIS [None]
  - SUPERINFECTION BACTERIAL [None]
